FAERS Safety Report 8110849-X (Version None)
Quarter: 2012Q1

REPORT INFORMATION
  Report Type: 
  Country: None (occurrence: None)
  Receive Date: 20120201
  Receipt Date: 20120201
  Transmission Date: 20120608
  Serious: Yes (Hospitalization)
  Sender: FDA-Public Use
  Company Number: None

PATIENT
  Age: 81 Year
  Sex: Male
  Weight: 105.3 kg

DRUGS (2)
  1. LISINOPRIL [Suspect]
     Indication: HYPERTENSION
     Dosage: 5 MG EVERY DAY PO
     Route: 048
     Dates: start: 20111018, end: 20120104
  2. BUMETANIDE [Suspect]
     Indication: HYPERTENSION
     Dosage: 2 MG EVERY DAY PO
     Route: 048
     Dates: start: 20111026, end: 20120104

REACTIONS (5)
  - GASTROENTERITIS [None]
  - BLOOD UREA INCREASED [None]
  - ASTHENIA [None]
  - HYPOTENSION [None]
  - BLOOD CREATININE INCREASED [None]
